FAERS Safety Report 9042411 (Version 1)
Quarter: 2013Q1

REPORT INFORMATION
  Report Type: Report from Study
  Country: US (occurrence: US)
  Receive Date: 20130129
  Receipt Date: 20130129
  Transmission Date: 20140127
  Serious: No
  Sender: FDA-Public Use
  Company Number: US-ABBOTT-12P-163-0906692-00

PATIENT
  Age: 25 Year
  Sex: Female

DRUGS (3)
  1. HUMIRA 40 MG/0.8 ML PEN [Suspect]
     Indication: CROHN^S DISEASE
     Dates: start: 20120117
  2. ASACOL [Concomitant]
     Indication: COLITIS ULCERATIVE
  3. ASACOL [Concomitant]
     Indication: CROHN^S DISEASE

REACTIONS (2)
  - Hypoaesthesia [Not Recovered/Not Resolved]
  - Menstruation delayed [Unknown]
